FAERS Safety Report 9733967 (Version 1)
Quarter: 2013Q4

REPORT INFORMATION
  Report Type: Report from Study
  Country: BR (occurrence: BR)
  Receive Date: 20131205
  Receipt Date: 20131205
  Transmission Date: 20140711
  Serious: Yes (Death, Hospitalization, Other)
  Sender: FDA-Public Use
  Company Number: PHHY2013BR141446

PATIENT
  Sex: Female
  Weight: 90 kg

DRUGS (7)
  1. DIOVAN HCT [Suspect]
     Indication: HYPERTENSION
     Dosage: 1 DF (VALS 320MG, HCTZ 12.5MG) DAILY
     Route: 048
     Dates: start: 20120517
  2. RAZAPINA [Concomitant]
     Indication: DEPRESSION
     Dosage: UNK UKN, UNK
     Dates: end: 20131115
  3. RAZAPINA [Concomitant]
     Indication: ANXIOLYTIC THERAPY
  4. LEXAPRO [Concomitant]
     Indication: DEPRESSION
     Dosage: UNK UKN, UNK
     Dates: end: 20131115
  5. LEXAPRO [Concomitant]
     Indication: ANXIOLYTIC THERAPY
  6. LYRICA [Concomitant]
     Indication: PAIN
     Dosage: UNK UKN, UNK
     Dates: end: 20131115
  7. SERETIDE [Concomitant]
     Indication: STEROID THERAPY
     Dosage: UNK UKN, UNK
     Dates: end: 20131115

REACTIONS (3)
  - Death [Fatal]
  - Pneumonia [Not Recovered/Not Resolved]
  - Infection [Not Recovered/Not Resolved]
